FAERS Safety Report 16432855 (Version 2)
Quarter: 2019Q3

REPORT INFORMATION
  Report Type: Spontaneous
  Country: US (occurrence: US)
  Receive Date: 20190614
  Receipt Date: 20190718
  Transmission Date: 20191004
  Serious: No
  Sender: FDA-Public Use
  Company Number: US-JNJFOC-20190607291

PATIENT
  Age: 43 Year
  Sex: Male
  Weight: 136.65 kg

DRUGS (2)
  1. RISPERDAL CONSTA [Suspect]
     Active Substance: RISPERIDONE
     Route: 030
     Dates: start: 20171114
  2. RISPERDAL CONSTA [Suspect]
     Active Substance: RISPERIDONE
     Indication: SCHIZOPHRENIA
     Route: 030
     Dates: end: 20171031

REACTIONS (3)
  - Blood prolactin increased [Not Recovered/Not Resolved]
  - Product complaint [Unknown]
  - Product dose omission [Unknown]

NARRATIVE: CASE EVENT DATE: 20171115
